FAERS Safety Report 25886886 (Version 1)
Quarter: 2025Q4

REPORT INFORMATION
  Report Type: Spontaneous
  Country: US (occurrence: US)
  Receive Date: 20251006
  Receipt Date: 20251006
  Transmission Date: 20260118
  Serious: No
  Sender: ASCENDIS PHARMA
  Company Number: US-ASCENDIS PHARMA-2025US010183

PATIENT

DRUGS (2)
  1. SKYTROFA [Suspect]
     Active Substance: LONAPEGSOMATROPIN-TCGD
     Indication: Growth hormone deficiency
     Dosage: 13.3 MILLIGRAM, WEEKLY
     Route: 058
     Dates: start: 2022
  2. ANASTROZOLE [Concomitant]
     Active Substance: ANASTROZOLE
     Indication: Epiphyses premature fusion
     Dosage: 1 MILLIGRAM, QD
     Route: 048
     Dates: start: 2021

REACTIONS (2)
  - Device issue [Unknown]
  - Overdose [Not Recovered/Not Resolved]

NARRATIVE: CASE EVENT DATE: 20250626
